FAERS Safety Report 25278263 (Version 1)
Quarter: 2025Q2

REPORT INFORMATION
  Report Type: Spontaneous
  Country: TW (occurrence: TW)
  Receive Date: 20250507
  Receipt Date: 20250507
  Transmission Date: 20250717
  Serious: Yes (Hospitalization)
  Sender: SANOFI AVENTIS
  Company Number: TW-ASTELLAS-2025-AER-023895

PATIENT
  Age: 59 Year
  Sex: Male
  Weight: 63 kg

DRUGS (4)
  1. TAMSULOSIN HYDROCHLORIDE [Suspect]
     Active Substance: TAMSULOSIN HYDROCHLORIDE
     Indication: Bladder outlet obstruction
     Dosage: 1 DF, QD (ONCE EVERY DAY)
     Route: 048
     Dates: start: 20250325, end: 20250403
  2. RABEPRAZOLE SODIUM [Concomitant]
     Active Substance: RABEPRAZOLE SODIUM
     Indication: Gastrointestinal ulcer
     Dosage: 1 DF, BID (ONCE EVERY 0.5 DAY)
     Route: 048
  3. FAMOTIDINE [Concomitant]
     Active Substance: FAMOTIDINE
     Indication: Gastric ulcer
     Dosage: 1 DF, BID (ONCE EVERY 0.5 DAY)
     Route: 048
  4. EXFORGE [Concomitant]
     Active Substance: AMLODIPINE BESYLATE\VALSARTAN
     Indication: Hypertension
     Dosage: 1 DF, QD (160 MG/ 6.94MG, FILM COATED TABLETS, ONCE EVERY DAY)
     Route: 048

REACTIONS (2)
  - Cellulitis [Recovered/Resolved]
  - Urticaria [Recovered/Resolved]

NARRATIVE: CASE EVENT DATE: 20250401
